FAERS Safety Report 15547930 (Version 3)
Quarter: 2018Q4

REPORT INFORMATION
  Report Type: Spontaneous
  Country: DE (occurrence: DE)
  Receive Date: 20181024
  Receipt Date: 20181108
  Transmission Date: 20190205
  Serious: Yes (Hospitalization, Other)
  Sender: FDA-Public Use
  Company Number: DE-BAYER-2018-196179

PATIENT
  Age: 40 Year
  Sex: Female

DRUGS (1)
  1. MIRENA [Suspect]
     Active Substance: LEVONORGESTREL
     Dosage: 20 MCG/24HR, CONT
     Route: 015
     Dates: start: 20140505

REACTIONS (4)
  - Uterine perforation [Unknown]
  - Suspected product quality issue [None]
  - Device breakage [Unknown]
  - Ovarian cyst [None]

NARRATIVE: CASE EVENT DATE: 20181024
